FAERS Safety Report 5237557-7 (Version None)
Quarter: 2007Q1

REPORT INFORMATION
  Report Type: 
  Country: None (occurrence: None)
  Receive Date: 20070213
  Receipt Date: 20070201
  Transmission Date: 20070707
  Serious: No
  Sender: FDA-Public Use
  Company Number: US-PFIZER INC-2007007398

PATIENT
  Sex: Female
  Weight: 67.1 kg

DRUGS (8)
  1. REVATIO [Suspect]
     Indication: PULMONARY HYPERTENSION
  2. WARFARIN SODIUM [Concomitant]
  3. FLONASE [Concomitant]
  4. KLOR-CON [Concomitant]
  5. LASIX [Concomitant]
  6. ILOPROST [Concomitant]
  7. NORVASC [Concomitant]
  8. XANAX [Concomitant]

REACTIONS (2)
  - PRURITUS [None]
  - RASH [None]
